FAERS Safety Report 18284150 (Version 7)
Quarter: 2022Q2

REPORT INFORMATION
  Report Type: Spontaneous
  Country: US (occurrence: US)
  Receive Date: 20200918
  Receipt Date: 20220502
  Transmission Date: 20220721
  Serious: No
  Sender: FDA-Public Use
  Company Number: US-PFIZER INC-2020358024

PATIENT
  Age: 85 Year
  Sex: Female
  Weight: 74 kg

DRUGS (1)
  1. LYRICA [Suspect]
     Active Substance: PREGABALIN
     Indication: Herpes zoster
     Dosage: 75 MG, 3X/DAY
     Route: 048

REACTIONS (8)
  - Drug ineffective [Unknown]
  - Hyperlipidaemia [Unknown]
  - Essential hypertension [Unknown]
  - Back pain [Unknown]
  - Memory impairment [Unknown]
  - Body height decreased [Unknown]
  - Oropharyngeal discomfort [Unknown]
  - Sinusitis [Unknown]
